FAERS Safety Report 9036525 (Version 1)
Quarter: 2013Q1

REPORT INFORMATION
  Report Type: Spontaneous
  Country: US (occurrence: None)
  Receive Date: 20130123
  Receipt Date: 20130123
  Transmission Date: 20140127
  Serious: Yes (Other)
  Sender: FDA-Public Use
  Company Number: None

PATIENT
  Sex: Male
  Weight: 88.45 kg

DRUGS (2)
  1. ABILIFY [Suspect]
     Route: 048
     Dates: start: 20100510, end: 20101219
  2. ABILIFY [Concomitant]

REACTIONS (17)
  - Dizziness [None]
  - Thinking abnormal [None]
  - Confusional state [None]
  - Dyspareunia [None]
  - Hypoaesthesia [None]
  - Motor dysfunction [None]
  - Visual impairment [None]
  - Eye pain [None]
  - Insomnia [None]
  - Penile pain [None]
  - Sexual dysfunction [None]
  - Erectile dysfunction [None]
  - Ejaculation failure [None]
  - Erectile dysfunction [None]
  - Dysuria [None]
  - Family stress [None]
  - Depression [None]
